FAERS Safety Report 4877032-2 (Version None)
Quarter: 2005Q4

REPORT INFORMATION
  Report Type: 
  Country: None (occurrence: None)
  Receive Date: 20051206
  Receipt Date: 20050817
  Transmission Date: 20060501
  Serious: No
  Sender: FDA-Public Use
  Company Number: USA0508105783

PATIENT
  Age: 59 Year
  Sex: Female

DRUGS (4)
  1. CYMBALTA [Suspect]
     Indication: DEPRESSION
     Dosage: 20 MG DAY
     Dates: start: 20050816
  2. LEXAPRO [Concomitant]
  3. KLONOPIN [Concomitant]
  4. VICODIN [Concomitant]

REACTIONS (4)
  - DRY MOUTH [None]
  - FEELING COLD [None]
  - SOMNOLENCE [None]
  - STOMACH DISCOMFORT [None]
